FAERS Safety Report 23252802 (Version 1)
Quarter: 2023Q4

REPORT INFORMATION
  Report Type: Other
  Country: US (occurrence: US)
  Receive Date: 20231201
  Receipt Date: 20231201
  Transmission Date: 20240110
  Serious: Yes (Other)
  Sender: FDA-Public Use
  Company Number: US-Merck Healthcare KGaA-2023489670

PATIENT
  Age: 56 Year
  Sex: Female

DRUGS (1)
  1. AVELUMAB [Suspect]
     Active Substance: AVELUMAB
     Indication: Ovarian cancer

REACTIONS (2)
  - Thrombotic microangiopathy [Recovering/Resolving]
  - Off label use [Unknown]
